FAERS Safety Report 17928059 (Version 4)
Quarter: 2021Q3

REPORT INFORMATION
  Report Type: Spontaneous
  Country: JP (occurrence: JP)
  Receive Date: 20200623
  Receipt Date: 20210908
  Transmission Date: 20211014
  Serious: Yes (Hospitalization, Other)
  Sender: FDA-Public Use
  Company Number: JP-GLAXOSMITHKLINE-JP2020JPN104751

PATIENT
  Age: 59 Year
  Sex: Male

DRUGS (10)
  1. LOXOFEN (LOXOPROFEN SODIUM) [Concomitant]
     Active Substance: LOXOPROFEN SODIUM
     Dosage: 60 MG, PRN
  2. DILTIAZEM HYDROCHLORIDE SUSTAINED RELEASE CAPSULES [Concomitant]
     Dosage: 1 DF, QD IN THE MORNING
     Dates: start: 20190611
  3. ISOSORBIDE DINITRATE. [Concomitant]
     Active Substance: ISOSORBIDE DINITRATE
     Dosage: 1 DF, BID  (MORNING AND EVENING)
     Dates: start: 20200201
  4. RELVAR ELLIPTA [Suspect]
     Active Substance: FLUTICASONE FUROATE\VILANTEROL TRIFENATATE
     Indication: ASTHMA
     Dosage: 200 ?G, QD
     Route: 055
     Dates: start: 20190611
  5. MONTELUKAST SODIUM. [Concomitant]
     Active Substance: MONTELUKAST SODIUM
     Indication: ASTHMA
     Dosage: 10 MG, QD
     Route: 048
     Dates: start: 20200611
  6. MAGNESIUM OXIDE. [Concomitant]
     Active Substance: MAGNESIUM OXIDE
     Dosage: 330 MG, TID (MORNING, AFTERNOON, NIGHT)
     Dates: start: 20190611
  7. PANTOSIN [Concomitant]
     Active Substance: PANTETHINE
     Dosage: 200 MG, TID  (MORNING, AFTERNOON, NIGHT)
     Dates: start: 20190611
  8. NICORANDIL [Concomitant]
     Active Substance: NICORANDIL
     Dosage: 5 MG, TID (MORNING, AFTERNOON, NIGHT)
     Dates: start: 20200201
  9. ROSUVASTATIN (ROSUVASTATIN CALCIUM) [Concomitant]
     Active Substance: ROSUVASTATIN CALCIUM
     Dosage: 2.5 MG, QD IN THE MORNING
  10. BIOFERMIN [Concomitant]
     Active Substance: DIETARY SUPPLEMENT\PROBIOTICS
     Dosage: 1 DF, TID (MORNING, AFTERNOON, NIGHT)
     Dates: start: 20190611

REACTIONS (6)
  - Wheezing [Unknown]
  - Prinzmetal angina [Unknown]
  - Cough [Unknown]
  - Dyspnoea [Unknown]
  - Acute myocardial infarction [Unknown]
  - Asthma [Recovered/Resolved]

NARRATIVE: CASE EVENT DATE: 20190622
